FAERS Safety Report 8135630-7 (Version None)
Quarter: 2012Q1

REPORT INFORMATION
  Report Type: 
  Country: None (occurrence: None)
  Receive Date: 20120214
  Receipt Date: 20120210
  Transmission Date: 20120608
  Serious: Yes (Life-Threatening, Other)
  Sender: FDA-Public Use
  Company Number: PHHY2012BR012095

PATIENT
  Age: 78 Year
  Sex: Female

DRUGS (3)
  1. RAMIPRIL [Concomitant]
  2. DIOVAN [Concomitant]
  3. RASILEZ [Suspect]
     Indication: HYPERTENSION
     Dosage: 300 MG, QD
     Route: 048
     Dates: start: 20110703, end: 20120210

REACTIONS (1)
  - CEREBROVASCULAR ACCIDENT [None]
